FAERS Safety Report 5965566-9 (Version None)
Quarter: 2008Q4

REPORT INFORMATION
  Report Type: 
  Country: None (occurrence: None)
  Receive Date: 20081125
  Receipt Date: 20080822
  Transmission Date: 20090506
  Serious: Yes (Other)
  Sender: FDA-Public Use
  Company Number: US-AMGEN-KDL223195

PATIENT
  Sex: Female

DRUGS (2)
  1. ENBREL [Suspect]
     Indication: RHEUMATOID ARTHRITIS
     Route: 058
     Dates: start: 20030813, end: 20070701
  2. METHOTREXATE [Concomitant]
     Route: 048
     Dates: start: 19950101

REACTIONS (4)
  - BLINDNESS TRANSIENT [None]
  - CONVULSION [None]
  - DIZZINESS [None]
  - RHEUMATOID ARTHRITIS [None]
